FAERS Safety Report 23358114 (Version 1)
Quarter: 2024Q1

REPORT INFORMATION
  Report Type: Spontaneous
  Country: US (occurrence: US)
  Receive Date: 20240102
  Receipt Date: 20240102
  Transmission Date: 20240410
  Serious: No
  Sender: FDA-Public Use
  Company Number: US-Blueprint Medicines Corporation-1875

PATIENT
  Sex: Female

DRUGS (33)
  1. AYVAKIT [Suspect]
     Active Substance: AVAPRITINIB
     Indication: Haematopoietic neoplasm
     Route: 065
     Dates: start: 202312
  2. ALEVE [Concomitant]
     Active Substance: NAPROXEN SODIUM
     Indication: Product used for unknown indication
     Route: 065
  3. VITAMINS NOS [Concomitant]
     Active Substance: VITAMINS
     Indication: Product used for unknown indication
     Route: 065
  4. BUPROPION [Concomitant]
     Active Substance: BUPROPION
     Indication: Product used for unknown indication
     Route: 065
  5. SYNTHROID [Concomitant]
     Active Substance: LEVOTHYROXINE SODIUM
     Indication: Product used for unknown indication
     Route: 065
  6. VITAMINS [Concomitant]
     Active Substance: VITAMINS
     Indication: Product used for unknown indication
     Route: 065
  7. CORTISONE [Concomitant]
     Active Substance: CORTISONE
     Indication: Product used for unknown indication
     Route: 065
  8. CORTISONE [Concomitant]
     Active Substance: CORTISONE
     Route: 065
  9. CORTISONE [Concomitant]
     Active Substance: CORTISONE
     Route: 065
  10. EpiPen 2 [Concomitant]
     Indication: Product used for unknown indication
     Route: 065
  11. EpiPen 2 [Concomitant]
     Route: 065
  12. EpiPen 2 [Concomitant]
     Route: 065
  13. ESCITALOPRAM OXALATE [Concomitant]
     Active Substance: ESCITALOPRAM OXALATE
     Indication: Product used for unknown indication
     Route: 065
  14. ESCITALOPRAM OXALATE [Concomitant]
     Active Substance: ESCITALOPRAM OXALATE
     Route: 065
  15. ESCITALOPRAM OXALATE [Concomitant]
     Active Substance: ESCITALOPRAM OXALATE
     Route: 065
  16. FAMOTIDINE [Concomitant]
     Active Substance: FAMOTIDINE
     Indication: Product used for unknown indication
     Route: 065
  17. FAMOTIDINE [Concomitant]
     Active Substance: FAMOTIDINE
     Route: 065
  18. FAMOTIDINE [Concomitant]
     Active Substance: FAMOTIDINE
     Route: 065
  19. FLONASE [Concomitant]
     Active Substance: FLUTICASONE PROPIONATE
     Indication: Product used for unknown indication
     Route: 065
  20. FLONASE [Concomitant]
     Active Substance: FLUTICASONE PROPIONATE
     Route: 065
  21. FLONASE [Concomitant]
     Active Substance: FLUTICASONE PROPIONATE
     Route: 065
  22. FOSAMAX [Concomitant]
     Active Substance: ALENDRONATE SODIUM
     Indication: Product used for unknown indication
     Route: 065
  23. FOSAMAX [Concomitant]
     Active Substance: ALENDRONATE SODIUM
     Route: 065
  24. FOSAMAX [Concomitant]
     Active Substance: ALENDRONATE SODIUM
     Route: 065
  25. XOLAIR [Concomitant]
     Active Substance: OMALIZUMAB
     Indication: Product used for unknown indication
     Route: 065
  26. XOLAIR [Concomitant]
     Active Substance: OMALIZUMAB
     Route: 065
  27. XOLAIR [Concomitant]
     Active Substance: OMALIZUMAB
     Route: 065
  28. LORATADINE [Concomitant]
     Active Substance: LORATADINE
     Indication: Product used for unknown indication
     Route: 065
  29. LORATADINE [Concomitant]
     Active Substance: LORATADINE
     Route: 065
  30. LORATADINE [Concomitant]
     Active Substance: LORATADINE
     Route: 065
  31. Calcium-Magnesium-Zinc [Concomitant]
     Indication: Product used for unknown indication
     Route: 065
  32. Calcium-Magnesium-Zinc [Concomitant]
     Route: 065
  33. Calcium-Magnesium-Zinc [Concomitant]
     Route: 065

REACTIONS (3)
  - Fatigue [Unknown]
  - Abdominal pain upper [Unknown]
  - Oropharyngeal pain [Unknown]
